FAERS Safety Report 7686210-9 (Version None)
Quarter: 2011Q3

REPORT INFORMATION
  Report Type: 
  Country: None (occurrence: None)
  Receive Date: 20110816
  Receipt Date: 20110810
  Transmission Date: 20111222
  Serious: Yes (Other)
  Sender: FDA-Public Use
  Company Number: KR-B.I. PHARMACEUTICALS,INC./RIDGEFIELD-2011-DE-03812GD

PATIENT

DRUGS (4)
  1. TELMISARTAN [Suspect]
     Indication: HYPERTENSION
     Dosage: EITHER 40 MG OR 80 MG PER DAY
  2. ZOTAROLIMUS [Suspect]
     Dosage: ROUTE: ELUTING FROM STENT
  3. ASPIRIN [Suspect]
  4. CLOPIDOGREL [Suspect]

REACTIONS (1)
  - MYOCARDIAL ISCHAEMIA [None]
